FAERS Safety Report 6769492-7 (Version None)
Quarter: 2010Q2

REPORT INFORMATION
  Report Type: 
  Country: None (occurrence: None)
  Receive Date: 20100615
  Receipt Date: 20100608
  Transmission Date: 20101027
  Serious: Yes (Other)
  Sender: FDA-Public Use
  Company Number: CA-BRISTOL-MYERS SQUIBB COMPANY-15146186

PATIENT
  Age: 54 Year
  Sex: Female

DRUGS (4)
  1. ORENCIA [Suspect]
     Indication: RHEUMATOID ARTHRITIS
     Dosage: TOTAL INFUSION RECEIVED 13; LAST INFUSION ON 07-JUN-2010.
     Route: 042
     Dates: start: 20090730
  2. APO-RAMIPRIL [Concomitant]
  3. LOSEC I.V. [Concomitant]
  4. GABAPENTIN [Concomitant]

REACTIONS (1)
  - HAEMOGLOBIN DECREASED [None]
